FAERS Safety Report 5134359-7 (Version None)
Quarter: 2006Q4

REPORT INFORMATION
  Report Type: 
  Country: None (occurrence: None)
  Receive Date: 20061025
  Receipt Date: 20061013
  Transmission Date: 20070319
  Serious: Yes (Congenital Anomaly)
  Sender: FDA-Public Use
  Company Number: AU-JNJFOC-20061003397

PATIENT

DRUGS (1)
  1. RISPERDAL CONSTA [Suspect]
     Indication: DRUG EXPOSURE DURING PREGNANCY
     Route: 015

REACTIONS (2)
  - CLEFT PALATE [None]
  - DRUG EXPOSURE DURING PREGNANCY [None]
